FAERS Safety Report 20951314 (Version 1)
Quarter: 2022Q2

REPORT INFORMATION
  Report Type: Other
  Country: CA (occurrence: CA)
  Receive Date: 20220613
  Receipt Date: 20220613
  Transmission Date: 20220721
  Serious: Yes (Other)
  Sender: FDA-Public Use
  Company Number: CA-INTERCEPT-PM2022001141

PATIENT
  Sex: Female

DRUGS (3)
  1. OCALIVA [Suspect]
     Active Substance: OBETICHOLIC ACID
     Indication: Primary biliary cholangitis
     Dosage: 5 MILLIGRAM, QD
     Route: 048
     Dates: start: 20220401
  2. IMIQUIMOD [Suspect]
     Active Substance: IMIQUIMOD
     Indication: Skin papilloma
     Dosage: UNK
     Dates: start: 2022
  3. URSODIOL [Concomitant]
     Active Substance: URSODIOL
     Dosage: 750 MILLIGRAM, QD
     Dates: start: 20161101

REACTIONS (6)
  - Loss of consciousness [Recovered/Resolved]
  - Skin papilloma [Recovering/Resolving]
  - Inflammation [Recovering/Resolving]
  - Gait inability [Recovering/Resolving]
  - Blood alkaline phosphatase increased [Unknown]
  - Dizziness [Recovering/Resolving]

NARRATIVE: CASE EVENT DATE: 20220101
